FAERS Safety Report 4917383-6 (Version None)
Quarter: 2006Q1

REPORT INFORMATION
  Report Type: 
  Country: None (occurrence: None)
  Receive Date: 20060221
  Receipt Date: 20060217
  Transmission Date: 20060701
  Serious: Yes (Disabling)
  Sender: FDA-Public Use
  Company Number: BR-GLAXOSMITHKLINE-A0594259A

PATIENT
  Age: 35 Year
  Sex: Female

DRUGS (4)
  1. NARAMIG [Suspect]
     Indication: MIGRAINE
     Dosage: 2.5MG PER DAY
     Route: 048
     Dates: start: 20060214, end: 20060216
  2. DECADRON SRC [Concomitant]
     Route: 048
     Dates: start: 20060214
  3. TOFRANIL [Concomitant]
     Route: 048
     Dates: start: 20060101
  4. NEOSALDINA [Concomitant]
     Route: 048
     Dates: start: 20060214

REACTIONS (4)
  - BALANCE DISORDER [None]
  - DEPRESSED LEVEL OF CONSCIOUSNESS [None]
  - FALL [None]
  - HYPOTENSION [None]
